FAERS Safety Report 6385462-5 (Version None)
Quarter: 2009Q4

REPORT INFORMATION
  Report Type: 
  Country: None (occurrence: None)
  Receive Date: 20091002
  Receipt Date: 20080909
  Transmission Date: 20100525
  Serious: No
  Sender: FDA-Public Use
  Company Number: US-ASTRAZENECA-2008UW18622

PATIENT
  Age: 41 Year
  Sex: Female
  Weight: 59 kg

DRUGS (4)
  1. ARIMIDEX [Suspect]
     Indication: BREAST CANCER
     Route: 048
     Dates: start: 20080819
  2. LEVOXYL [Concomitant]
  3. SINGULAIR [Concomitant]
  4. TOPAMAX [Concomitant]
     Indication: HOT FLUSH

REACTIONS (1)
  - MADAROSIS [None]
